FAERS Safety Report 19173722 (Version 2)
Quarter: 2021Q2

REPORT INFORMATION
  Report Type: Spontaneous
  Country: US (occurrence: US)
  Receive Date: 20210423
  Receipt Date: 20210617
  Transmission Date: 20210717
  Serious: Yes (Other)
  Sender: FDA-Public Use
  Company Number: US-PFIZER INC-2021345207

PATIENT
  Age: 71 Year
  Sex: Female

DRUGS (1)
  1. XELJANZ XR [Suspect]
     Active Substance: TOFACITINIB CITRATE
     Dosage: 11 MG
     Dates: start: 20210302

REACTIONS (13)
  - Gait disturbance [Unknown]
  - Neuralgia [Unknown]
  - Incontinence [Unknown]
  - Peripheral swelling [Unknown]
  - Foot deformity [Unknown]
  - Arthralgia [Unknown]
  - Weight increased [Unknown]
  - Haemochromatosis [Unknown]
  - Pain in extremity [Unknown]
  - Back pain [Unknown]
  - Rheumatoid arthritis [Unknown]
  - Urinary tract infection [Unknown]
  - Musculoskeletal stiffness [Unknown]

NARRATIVE: CASE EVENT DATE: 2021
